FAERS Safety Report 6727385-5 (Version None)
Quarter: 2010Q2

REPORT INFORMATION
  Report Type: 
  Country: None (occurrence: None)
  Receive Date: 20100517
  Receipt Date: 20100505
  Transmission Date: 20101027
  Serious: Yes (Other)
  Sender: FDA-Public Use
  Company Number: PHHY2010CA29367

PATIENT
  Sex: Female

DRUGS (2)
  1. GLEEVEC [Suspect]
     Dosage: 400 MG, UNK
     Route: 048
     Dates: start: 20090101
  2. GLEEVEC [Suspect]
     Route: 048

REACTIONS (3)
  - PSEUDOPORPHYRIA [None]
  - RASH [None]
  - SKIN LESION [None]
